FAERS Safety Report 25306722 (Version 1)
Quarter: 2025Q2

REPORT INFORMATION
  Report Type: Other
  Country: ES (occurrence: ES)
  Receive Date: 20250513
  Receipt Date: 20250513
  Transmission Date: 20250717
  Serious: Yes (Life-Threatening, Hospitalization)
  Sender: B BRAUN
  Company Number: ES-B.Braun Medical Inc.-2176610

PATIENT
  Age: 36 Year
  Sex: Male

DRUGS (5)
  1. LIDOCAINE HYDROCHLORIDE [Suspect]
     Active Substance: LIDOCAINE HYDROCHLORIDE
     Indication: Induction of anaesthesia
  2. MIDAZOLAM [Suspect]
     Active Substance: MIDAZOLAM
  3. FENTANYL [Suspect]
     Active Substance: FENTANYL
  4. EPINEPHRINE\LIDOCAINE [Suspect]
     Active Substance: EPINEPHRINE\LIDOCAINE
  5. PROPOFOL [Suspect]
     Active Substance: PROPOFOL

REACTIONS (1)
  - Trigemino-cardiac reflex [Recovered/Resolved]
